FAERS Safety Report 5881830-6 (Version None)
Quarter: 2008Q3

REPORT INFORMATION
  Report Type: 
  Country: None (occurrence: None)
  Receive Date: 20080912
  Receipt Date: 20080711
  Transmission Date: 20090109
  Serious: No
  Sender: FDA-Public Use
  Company Number: US-ABBOTT-08P-163-0462774-00

PATIENT
  Sex: Female
  Weight: 77.18 kg

DRUGS (12)
  1. HUMIRA [Suspect]
     Indication: PSORIATIC ARTHROPATHY
     Route: 058
     Dates: start: 20070901, end: 20071201
  2. HUMIRA [Suspect]
     Dates: start: 20080515
  3. ETANERCEPT [Concomitant]
     Indication: PSORIATIC ARTHROPATHY
     Dates: end: 20080508
  4. METHOTREXATE [Concomitant]
     Indication: PSORIATIC ARTHROPATHY
     Route: 048
  5. NABUMETONE [Concomitant]
     Indication: PSORIATIC ARTHROPATHY
     Route: 048
  6. AMITRIPTYLINE HYDROCHLORIDE [Concomitant]
     Indication: INSOMNIA
     Route: 048
  7. AMITRIPTYLINE HYDROCHLORIDE [Concomitant]
     Indication: ARTHRALGIA
  8. FOLIC ACID [Concomitant]
     Indication: VITAMIN SUPPLEMENTATION
     Route: 048
  9. SERTRALINE [Concomitant]
     Indication: DEPRESSION
     Route: 048
  10. ULTRACET [Concomitant]
     Indication: PAIN
     Dosage: 37.5 /325MG
  11. ATORVASTATIN CALCIUM [Concomitant]
     Indication: BLOOD CHOLESTEROL
     Route: 048
     Dates: start: 20030101
  12. ALENDRONATE SODIUM [Concomitant]
     Indication: OSTEOPENIA
     Route: 048

REACTIONS (1)
  - DRUG INEFFECTIVE [None]
